FAERS Safety Report 10757177 (Version 1)
Quarter: 2015Q1

REPORT INFORMATION
  Report Type: Spontaneous
  Country: US (occurrence: None)
  Receive Date: 20150130
  Receipt Date: 20150130
  Transmission Date: 20150721
  Serious: Yes (Death)
  Sender: FDA-Public Use
  Company Number: INT_00602_2014

PATIENT

DRUGS (3)
  1. SORAFENIB [Suspect]
     Active Substance: SORAFENIB
     Indication: SMALL CELL LUNG CANCER
     Dosage: DAILY STARTING ON DAY 1 CYCLE 1
     Route: 048
  2. ETOPOSIDE. [Suspect]
     Active Substance: ETOPOSIDE
     Indication: SMALL CELL LUNG CANCER
     Dosage: ON DAYS 1, 2, 3 EVERY 21 DAYS FOR FOUR CYCLES, INTRAVENOUS (NOT OTHERWISE SPECIFIED)
     Route: 042
  3. CISPLATIN (HQ SPECIALTY) [Suspect]
     Active Substance: CISPLATIN
     Indication: SMALL CELL LUNG CANCER
     Dosage: DAY 1, EVERY 21 DAYS FOR FOUR CYCLES, INTRAVENOUS (NOT OTHERWISE SPECIFIED)
     Route: 042

REACTIONS (2)
  - Toxicity to various agents [None]
  - Febrile neutropenia [None]
